FAERS Safety Report 7013393-6 (Version None)
Quarter: 2010Q3

REPORT INFORMATION
  Report Type: 
  Country: None (occurrence: None)
  Receive Date: 20100924
  Receipt Date: 20100914
  Transmission Date: 20110219
  Serious: No
  Sender: FDA-Public Use
  Company Number: US-B.I. PHARMACEUTICALS,INC./RIDGEFIELD-2010-BP-10418BP

PATIENT
  Sex: Male

DRUGS (2)
  1. ZANTAC 150 [Suspect]
     Dosage: 150 MG
     Route: 048
  2. PRILOSEC [Concomitant]

REACTIONS (2)
  - BUCCAL MUCOSAL ROUGHENING [None]
  - STOMATITIS [None]
